FAERS Safety Report 8346767-1 (Version None)
Quarter: 2012Q2

REPORT INFORMATION
  Report Type: 
  Country: None (occurrence: None)
  Receive Date: 20120508
  Receipt Date: 20120508
  Transmission Date: 20120825
  Serious: Yes (Other)
  Sender: FDA-Public Use
  Company Number: None

PATIENT
  Age: 36 Year
  Sex: Female

DRUGS (1)
  1. COPAXONE [Suspect]
     Dosage: 20MG DAILY SQ
     Route: 058
     Dates: start: 20120201

REACTIONS (5)
  - SUICIDAL IDEATION [None]
  - PERIPHERAL COLDNESS [None]
  - BACK DISORDER [None]
  - HOSTILITY [None]
  - MOOD ALTERED [None]
